FAERS Safety Report 8716270 (Version 4)
Quarter: 2012Q4

REPORT INFORMATION
  Report Type: 
  Country: US (occurrence: US)
  Receive Date: 20120810
  Receipt Date: 20121126
  Transmission Date: 20130627
  Serious: Yes (Hospitalization, Other)
  Sender: FDA-Public Use
  Company Number: US-009507513-2012SP022602

PATIENT

DRUGS (3)
  1. NUVARING [Suspect]
     Indication: CONTRACEPTION
     Dosage: 1 DF, qm
     Route: 067
     Dates: start: 20041128
  2. NUVARING [Suspect]
     Indication: MENSTRUATION IRREGULAR
     Dosage: 1 DF, qm
     Route: 067
     Dates: start: 20050725, end: 200512
  3. NUVARING [Suspect]
     Dosage: 1 DF, UNK
     Route: 067
     Dates: start: 20060708, end: 20090706

REACTIONS (10)
  - Chest pain [Unknown]
  - Pulmonary embolism [Recovering/Resolving]
  - Deep vein thrombosis [Recovering/Resolving]
  - Back pain [Unknown]
  - Dyspnoea [Unknown]
  - Herpes simplex [Unknown]
  - Blood cholesterol increased [Unknown]
  - Hypoglycaemia [Recovered/Resolved]
  - Metrorrhagia [Unknown]
  - Oligomenorrhoea [Unknown]
